FAERS Safety Report 6399937-6 (Version None)
Quarter: 2009Q4

REPORT INFORMATION
  Report Type: 
  Country: None (occurrence: None)
  Receive Date: 20091014
  Receipt Date: 20091005
  Transmission Date: 20100525
  Serious: Yes (Other)
  Sender: FDA-Public Use
  Company Number: CA-NOVOPROD-291764

PATIENT
  Age: 69 Year
  Sex: Female
  Weight: 90.703 kg

DRUGS (6)
  1. NOVOLIN GE NPH PENFILL [Suspect]
     Indication: DRUG USE FOR UNKNOWN INDICATION
  2. NOVOLIN GE TORONTO [Concomitant]
  3. DIOVAN                             /01319601/ [Concomitant]
  4. SYNTHROID [Concomitant]
  5. DOMPERIDONE [Concomitant]
  6. SUCRALFATE [Concomitant]

REACTIONS (3)
  - HYPERSENSITIVITY [None]
  - PANCREATIC CYST [None]
  - URTICARIA [None]
